FAERS Safety Report 20214240 (Version 1)
Quarter: 2021Q4

REPORT INFORMATION
  Report Type: Spontaneous
  Country: US (occurrence: None)
  Receive Date: 20211221
  Receipt Date: 20211221
  Transmission Date: 20220303
  Serious: Yes (Other)
  Sender: FDA-Public Use
  Company Number: None

PATIENT
  Age: 68 Year
  Sex: Male
  Weight: 99 kg

DRUGS (17)
  1. RESTASIS [Suspect]
     Active Substance: CYCLOSPORINE
     Indication: Dry eye
     Dosage: OTHER QUANTITY : 1 DROP(S);?FREQUENCY : EVERY 12 HOURS;?
     Route: 061
  2. DEVICE [Concomitant]
     Active Substance: DEVICE
  3. ATORVASTATIN CALCIUM [Concomitant]
     Active Substance: ATORVASTATIN CALCIUM
  4. LAMOTRIGINE [Concomitant]
     Active Substance: LAMOTRIGINE
  5. TEMAZEPAM [Concomitant]
     Active Substance: TEMAZEPAM
  6. TEMAZEPAM [Concomitant]
     Active Substance: TEMAZEPAM
  7. TAMSULOSIN [Concomitant]
     Active Substance: TAMSULOSIN
  8. VENLAFAXINE [Concomitant]
     Active Substance: VENLAFAXINE HYDROCHLORIDE
  9. LEVOTHYROXINE [Concomitant]
     Active Substance: LEVOTHYROXINE
  10. HYDROCHLOROTHIAZIDE\LISINOPRIL [Concomitant]
     Active Substance: HYDROCHLOROTHIAZIDE\LISINOPRIL
  11. BUPROPION [Concomitant]
     Active Substance: BUPROPION
  12. OMEPRAZOLE [Concomitant]
     Active Substance: OMEPRAZOLE
  13. QUETIAPINE [Concomitant]
     Active Substance: QUETIAPINE
  14. Hydrouyzine [Concomitant]
  15. VITAMIN B12 [Concomitant]
     Active Substance: CYANOCOBALAMIN
  16. ZINC [Concomitant]
     Active Substance: ZINC
  17. VITAMIN D3 [Concomitant]
     Active Substance: CHOLECALCIFEROL

REACTIONS (3)
  - Eye irritation [None]
  - Vision blurred [None]
  - Ocular hyperaemia [None]

NARRATIVE: CASE EVENT DATE: 20211101
